FAERS Safety Report 18476196 (Version 1)
Quarter: 2020Q4

REPORT INFORMATION
  Report Type: Spontaneous
  Country: DE (occurrence: DE)
  Receive Date: 20201107
  Receipt Date: 20201107
  Transmission Date: 20210114
  Serious: Yes (Hospitalization)
  Sender: FDA-Public Use
  Company Number: DE-ACCORD-207569

PATIENT
  Age: 77 Year
  Sex: Male
  Weight: 50 kg

DRUGS (4)
  1. NITRENDIPINE [Concomitant]
     Active Substance: NITRENDIPINE
     Dosage: 5 MG, AS REQUIRED
  2. AMLODIPINE [Suspect]
     Active Substance: AMLODIPINE BESYLATE
     Indication: PRODUCT USED FOR UNKNOWN INDICATION
     Dosage: 5 MG, 1-0-0-0
  3. RAMIPRIL. [Suspect]
     Active Substance: RAMIPRIL
     Indication: PRODUCT USED FOR UNKNOWN INDICATION
     Dosage: 5 MG, 1-0-1-0
  4. ACETYLSALICYLIC ACID [Concomitant]
     Active Substance: ASPIRIN
     Dosage: 100 MG, 1-0-0-0

REACTIONS (3)
  - Hypotension [Unknown]
  - Extra dose administered [Unknown]
  - Syncope [Unknown]

NARRATIVE: CASE EVENT DATE: 20200914
